FAERS Safety Report 4473151-3 (Version None)
Quarter: 2004Q4

REPORT INFORMATION
  Report Type: 
  Country: None (occurrence: None)
  Receive Date: 20041008
  Receipt Date: 20040929
  Transmission Date: 20050328
  Serious: Yes (Other)
  Sender: FDA-Public Use
  Company Number: K200401483

PATIENT
  Age: 71 Year
  Sex: Female

DRUGS (8)
  1. SYNERCID I.V.(QUINUPRISTIN, DALFOPRISTIN) INJECTION, 1G [Suspect]
     Indication: LUNG INFECTION
     Dosage: 1 G, QD, INTRAVENOUS
     Route: 042
     Dates: start: 20040826, end: 20040831
  2. DIGITALS (DIGITALS) [Concomitant]
  3. THYROID EXTRACT (THIROID EXTRACT) [Concomitant]
  4. OMEPRAZOLE [Concomitant]
  5. AMBROXOL  HYDROCHLORIDE (AMBROXOL HYDROCHLORIDE) [Concomitant]
  6. FUROSEMIDE [Concomitant]
  7. ACETYLCYSTEINE [Concomitant]
  8. VITAMINS WITH MINERALS (VITAMINS WITH MINERALS) [Concomitant]

REACTIONS (2)
  - BONE MARROW DEPRESSION [None]
  - PANCYTOPENIA [None]
